FAERS Safety Report 25360763 (Version 1)
Quarter: 2025Q2

REPORT INFORMATION
  Report Type: Spontaneous
  Country: IT (occurrence: IT)
  Receive Date: 20250527
  Receipt Date: 20250527
  Transmission Date: 20250717
  Serious: Yes (Hospitalization, Other)
  Sender: BAXTER
  Company Number: IT-MLMSERVICE-20250516-PI507737-00218-2

PATIENT
  Age: 14 Year
  Sex: Female
  Weight: 55.4 kg

DRUGS (11)
  1. PROPOFOL [Interacting]
     Active Substance: PROPOFOL
     Indication: Sedative therapy
     Route: 065
     Dates: start: 20240312
  2. PROPOFOL [Interacting]
     Active Substance: PROPOFOL
     Route: 065
     Dates: start: 20240312, end: 20240312
  3. DEXMEDETOMIDINE [Interacting]
     Active Substance: DEXMEDETOMIDINE
     Indication: Premedication
     Route: 065
     Dates: start: 20240312, end: 20240312
  4. DEXMEDETOMIDINE [Interacting]
     Active Substance: DEXMEDETOMIDINE
     Indication: Sedative therapy
  5. ONDANSETRON [Concomitant]
     Active Substance: ONDANSETRON
     Dates: start: 20240312, end: 20240312
  6. METHOTREXATE [Concomitant]
     Active Substance: METHOTREXATE
     Dates: start: 20240312
  7. THIOGUANINE [Concomitant]
     Active Substance: THIOGUANINE
  8. ACYCLOVIR [Concomitant]
     Active Substance: ACYCLOVIR
  9. AMLODIPINE [Concomitant]
     Active Substance: AMLODIPINE BESYLATE
  10. LANSOPRAZOLE [Concomitant]
     Active Substance: LANSOPRAZOLE
  11. LEUPROLIDE ACETATE [Concomitant]
     Active Substance: LEUPROLIDE ACETATE

REACTIONS (9)
  - Sedation complication [Unknown]
  - Drug-genetic interaction [Unknown]
  - Apnoea [Recovered/Resolved]
  - Oxygen saturation decreased [Unknown]
  - Delayed recovery from anaesthesia [Unknown]
  - Bradypnoea [Unknown]
  - Crying [Unknown]
  - Drug interaction [Unknown]
  - Chest pain [Unknown]
